FAERS Safety Report 23207175 (Version 1)
Quarter: 2023Q4

REPORT INFORMATION
  Report Type: Spontaneous
  Country: US (occurrence: US)
  Receive Date: 20231120
  Receipt Date: 20231120
  Transmission Date: 20240110
  Serious: No
  Sender: FDA-Public Use
  Company Number: US-INCYTE CORPORATION-2023IN011808

PATIENT

DRUGS (1)
  1. JAKAFI [Suspect]
     Active Substance: RUXOLITINIB
     Indication: Pancytopenia
     Dosage: 5 MILLIGRAM, BID
     Route: 048
     Dates: start: 20231005

REACTIONS (6)
  - Onychomycosis [Unknown]
  - Joint swelling [Unknown]
  - Muscle spasms [Unknown]
  - Fall [Unknown]
  - Product availability issue [Unknown]
  - Off label use [Unknown]

NARRATIVE: CASE EVENT DATE: 20231005
